FAERS Safety Report 24003576 (Version 1)
Quarter: 2024Q2

REPORT INFORMATION
  Report Type: Spontaneous
  Country: JP (occurrence: JP)
  Receive Date: 20240624
  Receipt Date: 20240624
  Transmission Date: 20240715
  Serious: Yes (Death)
  Sender: FDA-Public Use
  Company Number: JP-SERVIER-S24004178

PATIENT

DRUGS (6)
  1. ONCASPAR [Suspect]
     Active Substance: PEGASPARGASE
     Indication: Angiocentric lymphoma
     Dosage: 2000 IU/M2
     Route: 042
     Dates: start: 2023, end: 2023
  2. ONCASPAR [Suspect]
     Active Substance: PEGASPARGASE
     Dosage: 2000 IU/M2
     Route: 042
     Dates: start: 20231129, end: 20231129
  3. ONCASPAR [Suspect]
     Active Substance: PEGASPARGASE
     Dosage: 2914 IU
     Route: 042
     Dates: start: 20231225, end: 20231225
  4. DECADRON [Concomitant]
     Active Substance: DEXAMETHASONE
     Indication: Angiocentric lymphoma
     Dosage: UNK
     Route: 042
     Dates: start: 2023
  5. CISPLATIN [Concomitant]
     Active Substance: CISPLATIN
     Indication: Angiocentric lymphoma
     Dosage: UNK
     Route: 042
     Dates: start: 2023
  6. GEMCITABINE HYDROCHLORIDE [Concomitant]
     Active Substance: GEMCITABINE HYDROCHLORIDE
     Indication: Angiocentric lymphoma
     Dosage: UNK
     Route: 042
     Dates: start: 2023

REACTIONS (3)
  - Malignant neoplasm progression [Fatal]
  - Transaminases increased [Not Recovered/Not Resolved]
  - Ammonia increased [Unknown]

NARRATIVE: CASE EVENT DATE: 20240101
